FAERS Safety Report 9200648 (Version 1)
Quarter: 2013Q1

REPORT INFORMATION
  Report Type: Spontaneous
  Country: US (occurrence: US)
  Receive Date: 20130331
  Receipt Date: 20130331
  Transmission Date: 20140127
  Serious: Yes (Death)
  Sender: FDA-Public Use
  Company Number: US-UCBSA-081410

PATIENT
  Age: 81 Year
  Sex: Male

DRUGS (1)
  1. CIMZIA [Suspect]
     Indication: CROHN^S DISEASE
     Route: 058
     Dates: start: 20100723, end: 20130318

REACTIONS (1)
  - Death [Fatal]
